FAERS Safety Report 24297843 (Version 1)
Quarter: 2024Q3

REPORT INFORMATION
  Report Type: Other
  Country: GB (occurrence: GB)
  Receive Date: 20240909
  Receipt Date: 20240909
  Transmission Date: 20241016
  Serious: Yes (Death, Other)
  Sender: MACLEODS
  Company Number: None

PATIENT

DRUGS (1)
  1. LEVOFLOXACIN [Suspect]
     Active Substance: LEVOFLOXACIN
     Indication: Diabetic foot
     Route: 065

REACTIONS (9)
  - Myasthenia gravis [Fatal]
  - Muscular weakness [Not Recovered/Not Resolved]
  - Aphasia [Not Recovered/Not Resolved]
  - Dysphagia [Not Recovered/Not Resolved]
  - Urinary retention [Not Recovered/Not Resolved]
  - Immobile [Not Recovered/Not Resolved]
  - Anal incontinence [Not Recovered/Not Resolved]
  - Eyelid ptosis [Not Recovered/Not Resolved]
  - Medication error [Unknown]
